FAERS Safety Report 12890302 (Version 2)
Quarter: 2016Q4

REPORT INFORMATION
  Report Type: Spontaneous
  Country: FR (occurrence: FR)
  Receive Date: 20161027
  Receipt Date: 20161031
  Transmission Date: 20170207
  Serious: Yes (Hospitalization)
  Sender: FDA-Public Use
  Company Number: FR-SA-2016SA195046

PATIENT
  Age: 50 Year
  Sex: Female

DRUGS (10)
  1. TIORFAN [Suspect]
     Active Substance: RACECADOTRIL
     Dosage: 100 MG CAPSULE
     Route: 048
     Dates: start: 20160726, end: 20160801
  2. LOVENOX [Suspect]
     Active Substance: ENOXAPARIN SODIUM
     Dosage: 4000 IU ANTI-XA / 0.4 ML, SOLUTION FOR INJECTION IN CARTRIDGE
     Route: 058
     Dates: start: 20160726, end: 20160803
  3. LYSANXIA [Concomitant]
     Active Substance: PRAZEPAM
     Route: 065
  4. INEXIUM [Concomitant]
     Active Substance: ESOMEPRAZOLE
     Route: 065
  5. CEFTRIAXONE. [Concomitant]
     Active Substance: CEFTRIAXONE
     Dosage: DISCONTINUED SINCE 17 DAYS
     Route: 065
  6. ROVAMYCINE [Concomitant]
     Active Substance: SPIRAMYCIN
     Dosage: DISCONTINUED SINCE 11 DAYS
     Route: 065
  7. PHLOROGLUCINOL [Suspect]
     Active Substance: PHLOROGLUCINOL
     Route: 048
     Dates: start: 20160726, end: 20160801
  8. DOLIPRANE [Concomitant]
     Active Substance: ACETAMINOPHEN
     Route: 065
  9. DIAMOX SEQUELS [Concomitant]
     Active Substance: ACETAZOLAMIDE
     Route: 065
  10. LANSOPRAZOLE. [Suspect]
     Active Substance: LANSOPRAZOLE
     Dosage: 15 MG, GASTRO-RESISTANT CAPSULE
     Route: 048
     Dates: start: 20160726, end: 20160802

REACTIONS (1)
  - Toxic skin eruption [Recovered/Resolved]

NARRATIVE: CASE EVENT DATE: 20160731
